FAERS Safety Report 25259663 (Version 1)
Quarter: 2025Q2

REPORT INFORMATION
  Report Type: Spontaneous
  Country: CN (occurrence: CN)
  Receive Date: 20250501
  Receipt Date: 20250501
  Transmission Date: 20250717
  Serious: Yes (Hospitalization, Other)
  Sender: BRACCO
  Company Number: CN-BRACCO-2025CN02740

PATIENT
  Age: 70 Year
  Sex: Male

DRUGS (1)
  1. MULTIHANCE [Suspect]
     Active Substance: GADOBENATE DIMEGLUMINE
     Indication: Magnetic resonance imaging prostate
     Route: 042
     Dates: start: 20250420, end: 20250420

REACTIONS (3)
  - Loss of consciousness [Unknown]
  - Cyanosis [Unknown]
  - Urinary incontinence [Unknown]

NARRATIVE: CASE EVENT DATE: 20250420
